FAERS Safety Report 21264790 (Version 1)
Quarter: 2022Q3

REPORT INFORMATION
  Report Type: Spontaneous
  Country: US (occurrence: None)
  Receive Date: 20220827
  Receipt Date: 20220827
  Transmission Date: 20221027
  Serious: Yes (Life-Threatening, Hospitalization)
  Sender: FDA-Public Use
  Company Number: None

PATIENT
  Age: 65 Year
  Sex: Female

DRUGS (1)
  1. GEMCITABINE [Suspect]
     Active Substance: GEMCITABINE
     Indication: Pancreatic carcinoma
     Dosage: FREQUENCY : ONCE;?
     Route: 042
     Dates: start: 20220111

REACTIONS (6)
  - Hypervolaemia [None]
  - Loss of personal independence in daily activities [None]
  - Abdominal distension [None]
  - Ascites [None]
  - Peripheral swelling [None]
  - Capillary leak syndrome [None]

NARRATIVE: CASE EVENT DATE: 20220523
